FAERS Safety Report 8219212-4 (Version None)
Quarter: 2012Q1

REPORT INFORMATION
  Report Type: 
  Country: None (occurrence: None)
  Receive Date: 20120319
  Receipt Date: 20120313
  Transmission Date: 20120608
  Serious: Yes (Hospitalization)
  Sender: FDA-Public Use
  Company Number: JP-PFIZER INC-2011206383

PATIENT
  Age: 61 Year
  Sex: Male
  Weight: 56.5 kg

DRUGS (6)
  1. POLARAMINE [Concomitant]
     Indication: PROPHYLAXIS
     Dosage: 5 MG/TIME
     Route: 042
  2. TEMSIROLIMUS [Suspect]
     Indication: RENAL CELL CARCINOMA
     Dosage: 25 MG, WEEKLY
     Dates: start: 20110421
  3. TEMSIROLIMUS [Suspect]
     Dosage: 20 MG
     Dates: start: 20110519, end: 20110519
  4. TEMSIROLIMUS [Suspect]
     Dosage: 25 MG, WEEKLY
     Dates: start: 20110428
  5. TEMSIROLIMUS [Suspect]
     Dosage: 20 MG, WEEKLY
     Dates: start: 20110512
  6. ZOMETA [Concomitant]
     Indication: RENAL CELL CARCINOMA
     Dosage: 3.3 MG, MONTHLY
     Route: 042

REACTIONS (3)
  - PNEUMONIA [None]
  - CHOLECYSTITIS [None]
  - BILIARY TRACT DISORDER [None]
